FAERS Safety Report 9202793 (Version 2)
Quarter: 2013Q2

REPORT INFORMATION
  Report Type: Spontaneous
  Country: US (occurrence: US)
  Receive Date: 20130401
  Receipt Date: 20130412
  Transmission Date: 20140414
  Serious: No
  Sender: FDA-Public Use
  Company Number: US-009507513-1303USA013438

PATIENT
  Age: 96 Year
  Sex: Male

DRUGS (9)
  1. DULERA [Suspect]
     Indication: ASTHMA
     Dosage: 1 PUFF, BID
     Route: 055
     Dates: start: 20130315
  2. POTASSIUM (UNSPECIFIED) [Concomitant]
  3. RAMIPRIL [Concomitant]
  4. LIPITOR [Concomitant]
  5. ATENOLOL [Concomitant]
  6. ZETIA [Concomitant]
  7. VITAMIN D (UNSPECIFIED) [Concomitant]
  8. OMEGA-3 MARINE TRIGLYCERIDES [Concomitant]
  9. ASPIRIN [Concomitant]

REACTIONS (1)
  - Speech disorder [Recovering/Resolving]
